FAERS Safety Report 8043728 (Version 2)
Quarter: 2012Q4

REPORT INFORMATION
  Report Type: 
  Country: US (occurrence: US)
  Receive Date: 20110719
  Receipt Date: 20121210
  Transmission Date: 20130627
  Serious: Yes (Hospitalization)
  Sender: FDA-Public Use
  Company Number: US-GLAXOSMITHKLINE-A0910423A

PATIENT
  Sex: Female

DRUGS (1)
  1. AVANDIA [Suspect]
     Indication: DIABETES MELLITUS
     Dosage: 8MG Per day
     Route: 048
     Dates: start: 200101, end: 200703

REACTIONS (8)
  - Cardiac failure congestive [Recovering/Resolving]
  - Vomiting [Unknown]
  - Tremor [Unknown]
  - Lung disorder [Unknown]
  - Dizziness [Unknown]
  - Headache [Unknown]
  - Cataract [Unknown]
  - Atrial fibrillation [Unknown]
